FAERS Safety Report 16866448 (Version 3)
Quarter: 2019Q4

REPORT INFORMATION
  Report Type: Spontaneous
  Country: JP (occurrence: JP)
  Receive Date: 20190930
  Receipt Date: 20191101
  Transmission Date: 20200122
  Serious: Yes (Other)
  Sender: FDA-Public Use
  Company Number: JP-GLAXOSMITHKLINE-JP2019JPN159313

PATIENT
  Age: 37 Year
  Sex: Female

DRUGS (5)
  1. IMIGRAN-T [Suspect]
     Active Substance: SUMATRIPTAN SUCCINATE
     Indication: MIGRAINE
     Dosage: UNK
     Route: 048
  2. IMIGRAN-T [Suspect]
     Active Substance: SUMATRIPTAN SUCCINATE
     Dosage: 50 MG, PRN
     Route: 048
     Dates: start: 20190823
  3. GENINAX [Suspect]
     Active Substance: GARENOXACIN MESYLATE
     Indication: PNEUMONIA
     Dosage: 400 MG, QD
     Route: 048
     Dates: start: 20190823, end: 20190827
  4. MIYA-BM [Suspect]
     Active Substance: CLOSTRIDIUM BUTYRICUM SPORES STRAIN M-55
     Indication: GASTROINTESTINAL DISORDER
     Dosage: 1 DF, QD
     Route: 048
     Dates: start: 20190823, end: 20190829
  5. MAINTATE [Concomitant]
     Active Substance: BISOPROLOL FUMARATE
     Dosage: UNK
     Dates: start: 20190826

REACTIONS (5)
  - Physical deconditioning [Unknown]
  - Pneumonia [Recovered/Resolved]
  - Extrasystoles [Recovered/Resolved]
  - Gastrointestinal disorder [Unknown]
  - Arrhythmia [Recovered/Resolved]

NARRATIVE: CASE EVENT DATE: 20190823
